FAERS Safety Report 7971662-7 (Version None)
Quarter: 2011Q4

REPORT INFORMATION
  Report Type: 
  Country: None (occurrence: None)
  Receive Date: 20111212
  Receipt Date: 20111205
  Transmission Date: 20120403
  Serious: Yes (Hospitalization, Other)
  Sender: FDA-Public Use
  Company Number: BR-ABBOTT-11P-020-0706590-00

PATIENT
  Sex: Female
  Weight: 7.7 kg

DRUGS (9)
  1. DEPAKOTE [Suspect]
     Indication: EPILEPSY
     Route: 048
     Dates: start: 20100801, end: 20110201
  2. ANOTHER EPILEPSY MEDICATION [Interacting]
     Indication: EPILEPSY
  3. CLONAZEPAM [Concomitant]
     Indication: EPILEPSY
     Route: 048
     Dates: start: 20110801
  4. CLOBAZAM [Concomitant]
     Indication: CONVULSION PROPHYLAXIS
     Route: 048
     Dates: start: 20110801
  5. DEPAKOTE [Interacting]
     Indication: CONVULSION
     Dosage: 2 CAPSULES PER DAY
     Route: 048
     Dates: start: 20110701
  6. LAMOTRIGINE [Concomitant]
     Indication: EPILEPSY
     Dosage: 1/2 TABLET IN THE AM AND 3/4 AT NIGHT
     Route: 048
  7. TOPIRAMATE [Concomitant]
     Indication: CONVULSION PROPHYLAXIS
     Route: 048
     Dates: start: 20110701
  8. DEPAKOTE [Interacting]
     Dosage: 4 CAPSULES PER DAY
     Route: 048
  9. DEPAKOTE [Interacting]
     Dosage: 2 CAPSULE PER DAY
     Route: 048

REACTIONS (14)
  - PLATELET COUNT DECREASED [None]
  - EPILEPSY [None]
  - ASTHENIA [None]
  - DEVELOPMENTAL DELAY [None]
  - HYPERSOMNIA [None]
  - CHOKING [None]
  - DRUG INTERACTION [None]
  - NYSTAGMUS [None]
  - HYDROCEPHALUS [None]
  - PSYCHOMOTOR SKILLS IMPAIRED [None]
  - VOMITING [None]
  - MENINGITIS CHEMICAL [None]
  - DRUG INEFFECTIVE [None]
  - EYE MOVEMENT DISORDER [None]
